FAERS Safety Report 4342419-3 (Version None)
Quarter: 2004Q2

REPORT INFORMATION
  Report Type: 
  Country: None (occurrence: None)
  Receive Date: 20040420
  Receipt Date: 20040420
  Transmission Date: 20050107
  Serious: Yes (Disabling)
  Sender: FDA-Public Use
  Company Number: None

PATIENT
  Age: 67 Year
  Sex: Male
  Weight: 95.2554 kg

DRUGS (3)
  1. ZOCOR [Suspect]
     Indication: BLOOD CHOLESTEROL INCREASED
     Dosage: 20 MG QD
     Dates: start: 20000101, end: 20030101
  2. TOPROL-XL [Concomitant]
  3. ALTACE [Concomitant]

REACTIONS (2)
  - ASTHMA [None]
  - MYALGIA [None]
